FAERS Safety Report 5813465-5 (Version None)
Quarter: 2008Q3

REPORT INFORMATION
  Report Type: 
  Country: None (occurrence: None)
  Receive Date: 20080716
  Receipt Date: 20080716
  Transmission Date: 20090109
  Serious: No
  Sender: FDA-Public Use
  Company Number: None

PATIENT
  Age: 84 Year
  Sex: Male
  Weight: 66.13 kg

DRUGS (1)
  1. CIPRO IN DEXTROSE 5% [Suspect]
     Indication: URINARY TRACT INFECTION
     Dosage: 400 MG ONCE IV
     Route: 042
     Dates: start: 20080713, end: 20080713

REACTIONS (6)
  - COUGH [None]
  - HEART RATE INCREASED [None]
  - HYPOTENSION [None]
  - PAIN [None]
  - RASH [None]
  - WHEEZING [None]
